FAERS Safety Report 4449021-3 (Version None)
Quarter: 2004Q3

REPORT INFORMATION
  Report Type: 
  Country: None (occurrence: None)
  Receive Date: 20040910
  Receipt Date: 20040901
  Transmission Date: 20050211
  Serious: Yes (Hospitalization, Other)
  Sender: FDA-Public Use
  Company Number: 2004228446GB

PATIENT
  Sex: Male

DRUGS (2)
  1. ALDACTONE [Suspect]
     Dosage: ORAL
     Route: 048
  2. DIGOXIN [Concomitant]

REACTIONS (4)
  - CHEST PAIN [None]
  - DYSPNOEA [None]
  - GYNAECOMASTIA [None]
  - RESPIRATION ABNORMAL [None]
